FAERS Safety Report 7715841-2 (Version None)
Quarter: 2011Q3

REPORT INFORMATION
  Report Type: 
  Country: None (occurrence: None)
  Receive Date: 20110829
  Receipt Date: 20110829
  Transmission Date: 20111222
  Serious: Yes (Other)
  Sender: FDA-Public Use
  Company Number: None

PATIENT
  Age: 37 Year
  Sex: Female
  Weight: 65.77 kg

DRUGS (2)
  1. PROSED/DS [Concomitant]
     Indication: CYSTITIS INTERSTITIAL
     Dosage: 1 TABLET
     Route: 048
  2. AVELOX [Suspect]
     Indication: URINARY TRACT INFECTION
     Dosage: 1 400 MG TABLET
     Route: 048

REACTIONS (7)
  - MUSCLE FATIGUE [None]
  - DIZZINESS [None]
  - MOVEMENT DISORDER [None]
  - FATIGUE [None]
  - IMPAIRED WORK ABILITY [None]
  - DRUG INTERACTION [None]
  - MUSCULAR WEAKNESS [None]
